FAERS Safety Report 5455049-7 (Version None)
Quarter: 2007Q3

REPORT INFORMATION
  Report Type: 
  Country: None (occurrence: None)
  Receive Date: 20070913
  Receipt Date: 20070823
  Transmission Date: 20080115
  Serious: Yes (Hospitalization, Other)
  Sender: FDA-Public Use
  Company Number: 6037429

PATIENT
  Age: 76 Year
  Sex: Male

DRUGS (4)
  1. CLARITHROMYCIN [Suspect]
     Indication: HELICOBACTER GASTRITIS
     Dosage: 1 GM (1 GM, 1 IN 1 D)
  2. COLCHICUM JTL LIQ [Suspect]
     Indication: FAMILIAL MEDITERRANEAN FEVER
     Dosage: 1,5 MG (1,5 MG, 1 IN 1 D); 0,5 MG (0,5 MG, 1 IN 1 D)
  3. AMOXICILLIN [Concomitant]
  4. OMEPRAZOLE [Concomitant]

REACTIONS (17)
  - ABDOMINAL PAIN [None]
  - BLOOD BICARBONATE ABNORMAL [None]
  - BLOOD CREATINE INCREASED [None]
  - BLOOD UREA INCREASED [None]
  - C-REACTIVE PROTEIN INCREASED [None]
  - CHOLESTASIS [None]
  - DEHYDRATION [None]
  - DIARRHOEA HAEMORRHAGIC [None]
  - DRUG INTERACTION [None]
  - DRUG TOXICITY [None]
  - HAEMATURIA [None]
  - HYPONATRAEMIA [None]
  - LIPASE INCREASED [None]
  - PANCYTOPENIA [None]
  - PROTEINURIA [None]
  - PYREXIA [None]
  - VOMITING [None]
